FAERS Safety Report 9457486 (Version 1)
Quarter: 2013Q3

REPORT INFORMATION
  Report Type: Spontaneous
  Country: US (occurrence: None)
  Receive Date: 20130812
  Receipt Date: 20130812
  Transmission Date: 20140515
  Serious: Yes (Disabling)
  Sender: FDA-Public Use
  Company Number: None

PATIENT
  Age: 68 Year
  Sex: Male
  Weight: 86.18 kg

DRUGS (1)
  1. BRILINTA [Suspect]
     Indication: CORONARY ARTERIAL STENT INSERTION
     Dosage: 1 PILL TWICE DAILY TAKEN BU MOUTH
     Route: 048
     Dates: start: 20130525, end: 20130810

REACTIONS (14)
  - Headache [None]
  - Nausea [None]
  - Dizziness [None]
  - Dyspnoea [None]
  - Epistaxis [None]
  - Asthenia [None]
  - Diarrhoea [None]
  - Anxiety [None]
  - Mental impairment [None]
  - Insomnia [None]
  - Unevaluable event [None]
  - Abdominal pain upper [None]
  - Decreased appetite [None]
  - No therapeutic response [None]
